FAERS Safety Report 15725153 (Version 1)
Quarter: 2018Q4

REPORT INFORMATION
  Report Type: Report from Study
  Country: CA (occurrence: CA)
  Receive Date: 20181215
  Receipt Date: 20181215
  Transmission Date: 20190205
  Serious: Yes (Other)
  Sender: FDA-Public Use
  Company Number: CA-ROCHE-2205333

PATIENT
  Age: 56 Year
  Sex: Female

DRUGS (5)
  1. NAPROXEN. [Concomitant]
     Active Substance: NAPROXEN
  2. TELMISARTAN. [Concomitant]
     Active Substance: TELMISARTAN
  3. ACTEMRA [Suspect]
     Active Substance: TOCILIZUMAB
     Indication: RHEUMATOID ARTHRITIS
     Route: 042
     Dates: start: 20181019, end: 20181116
  4. PANTOLOC [Concomitant]
     Active Substance: PANTOPRAZOLE SODIUM
  5. LIPIDIL [Concomitant]
     Active Substance: FENOFIBRATE

REACTIONS (11)
  - Injection site pruritus [Unknown]
  - Nervousness [Unknown]
  - Fear [Unknown]
  - Mouth ulceration [Unknown]
  - Blood pressure increased [Unknown]
  - Nausea [Unknown]
  - Rectal ulcer [Unknown]
  - Nausea [Recovered/Resolved]
  - Hot flush [Unknown]
  - Eating disorder [Unknown]
  - Hepatic enzyme increased [Unknown]

NARRATIVE: CASE EVENT DATE: 20181019
